FAERS Safety Report 24561246 (Version 2)
Quarter: 2024Q4

REPORT INFORMATION
  Report Type: Spontaneous
  Country: CA (occurrence: CA)
  Receive Date: 20241029
  Receipt Date: 20241108
  Transmission Date: 20250114
  Serious: Yes (Other)
  Sender: EMD SERONO INC
  Company Number: CA-Merck Healthcare KGaA-2024056736

PATIENT
  Age: 71 Year
  Sex: Female

DRUGS (2)
  1. MAVENCLAD [Suspect]
     Active Substance: CLADRIBINE
     Indication: Multiple sclerosis
     Dosage: YEAR ONE THERAPY
     Dates: start: 20230608, end: 20240813
  2. MAVENCLAD [Suspect]
     Active Substance: CLADRIBINE
     Dosage: YEAR TWO THERAPY
     Dates: end: 20240813

REACTIONS (4)
  - Stress cardiomyopathy [Recovered/Resolved]
  - Prinzmetal angina [Recovering/Resolving]
  - Abdominal pain [Recovering/Resolving]
  - Carditis [Recovering/Resolving]

NARRATIVE: CASE EVENT DATE: 20240923
